FAERS Safety Report 4939196-1 (Version None)
Quarter: 2006Q1

REPORT INFORMATION
  Report Type: 
  Country: None (occurrence: None)
  Receive Date: 20060309
  Receipt Date: 20060309
  Transmission Date: 20060701
  Serious: Yes (Death, Hospitalization)
  Sender: FDA-Public Use
  Company Number: None

PATIENT
  Age: 66 Year
  Sex: Male
  Weight: 78.1 kg

DRUGS (12)
  1. BEVACIZUMAB GENENTECH [Suspect]
     Indication: NON-SMALL CELL LUNG CANCER
     Dosage: 15 MG/KG Q 21 DAYS IV
     Route: 042
     Dates: start: 20051108, end: 20060131
  2. PEMETREXED  ELI LILY [Suspect]
     Indication: NON-SMALL CELL LUNG CANCER
     Dosage: 500 MG/M2 Q 21 DAYS IV
     Route: 042
     Dates: start: 20051108, end: 20060131
  3. FOLATE [Concomitant]
  4. ATIVAN [Concomitant]
  5. ZOLOFT [Concomitant]
  6. DIGOXIN [Concomitant]
  7. COMPAZINE [Concomitant]
  8. ATENOLOL [Concomitant]
  9. ALLEGRA [Concomitant]
  10. ADVAIR DISKUS 100/50 [Concomitant]
  11. OXANDRIN [Concomitant]
  12. MULTI-VITAMIN [Concomitant]

REACTIONS (10)
  - DECREASED APPETITE [None]
  - DISEASE PROGRESSION [None]
  - DRY MOUTH [None]
  - MALIGNANT NEOPLASM PROGRESSION [None]
  - MULTI-ORGAN FAILURE [None]
  - NON-SMALL CELL LUNG CANCER METASTATIC [None]
  - PNEUMONIA [None]
  - PNEUMONIA VIRAL [None]
  - PNEUMONITIS [None]
  - REFUSAL OF TREATMENT BY RELATIVE [None]
